FAERS Safety Report 21098013 (Version 19)
Quarter: 2025Q1

REPORT INFORMATION
  Report Type: Report from Study
  Country: US (occurrence: US)
  Receive Date: 20220719
  Receipt Date: 20250208
  Transmission Date: 20250409
  Serious: Yes (Hospitalization, Other)
  Sender: TAKEDA
  Company Number: US-TAKEDA-2022TUS038264

PATIENT
  Age: 57 Year
  Sex: Female
  Weight: 171 kg

DRUGS (11)
  1. TEDUGLUTIDE [Suspect]
     Active Substance: TEDUGLUTIDE
     Indication: Short-bowel syndrome
     Dosage: UNK UNK, QD
     Dates: start: 202204
  2. TEDUGLUTIDE [Suspect]
     Active Substance: TEDUGLUTIDE
     Dosage: 2.34 MILLIGRAM, QD
     Dates: start: 20220510
  3. TEDUGLUTIDE [Suspect]
     Active Substance: TEDUGLUTIDE
     Dosage: 2.34 MILLIGRAM, QD
     Dates: start: 20220511
  4. TEDUGLUTIDE [Suspect]
     Active Substance: TEDUGLUTIDE
     Dosage: 2.34 MILLIGRAM, QD
     Dates: start: 202205
  5. TEDUGLUTIDE [Suspect]
     Active Substance: TEDUGLUTIDE
     Dosage: 0.234 MILLILITER, QD
  6. TEDUGLUTIDE [Suspect]
     Active Substance: TEDUGLUTIDE
     Dosage: 0.23 MILLILITER, QD
     Dates: start: 202205
  7. DIGOXIN [Suspect]
     Active Substance: DIGOXIN
     Indication: Product used for unknown indication
  8. PLAVIX [Suspect]
     Active Substance: CLOPIDOGREL BISULFATE
     Indication: Product used for unknown indication
  9. ATENOLOL [Concomitant]
     Active Substance: ATENOLOL
  10. ARANESP [Concomitant]
     Active Substance: DARBEPOETIN ALFA
  11. ARANESP [Concomitant]
     Active Substance: DARBEPOETIN ALFA

REACTIONS (29)
  - Cardiac disorder [Unknown]
  - White blood cell count increased [Unknown]
  - Sepsis [Unknown]
  - Hypomagnesaemia [Unknown]
  - Pneumonia [Unknown]
  - Gastrointestinal haemorrhage [Unknown]
  - Pleural effusion [Unknown]
  - Cholecystitis infective [Unknown]
  - Respiratory syncytial virus infection [Unknown]
  - Vitamin D decreased [Unknown]
  - Blister [Unknown]
  - Somnolence [Unknown]
  - Weight decreased [Unknown]
  - Gastroenteritis viral [Unknown]
  - Blood creatinine increased [Unknown]
  - Illness [Unknown]
  - Diarrhoea [Not Recovered/Not Resolved]
  - Urinary tract infection [Unknown]
  - Renal function test abnormal [Unknown]
  - Red blood cell count decreased [Unknown]
  - Haemoglobin decreased [Unknown]
  - Dehydration [Unknown]
  - Blood glucose decreased [Unknown]
  - Blood iron decreased [Unknown]
  - Asthenia [Unknown]
  - Hypersomnia [Unknown]
  - Rash [Unknown]
  - Vomiting [Not Recovered/Not Resolved]
  - Nausea [Not Recovered/Not Resolved]

NARRATIVE: CASE EVENT DATE: 20220711
